FAERS Safety Report 15211767 (Version 1)
Quarter: 2018Q3

REPORT INFORMATION
  Report Type: Spontaneous
  Country: US (occurrence: US)
  Receive Date: 20180702
  Receipt Date: 20180702
  Transmission Date: 20181010
  Serious: No
  Sender: FDA-Public Use
  Company Number: None

PATIENT
  Age: 58 Year
  Sex: Female

DRUGS (4)
  1. OMEPRAZOLE. [Suspect]
     Active Substance: OMEPRAZOLE
  2. STELARA [Suspect]
     Active Substance: USTEKINUMAB
     Indication: PSORIASIS
     Route: 058
     Dates: start: 20160210
  3. BUPROPION. [Concomitant]
     Active Substance: BUPROPION
  4. NITROFUR MAC [Concomitant]
     Active Substance: NITROFURANTOIN

REACTIONS (1)
  - Sexual transmission of infection [None]

NARRATIVE: CASE EVENT DATE: 20180602
